FAERS Safety Report 14267023 (Version 1)
Quarter: 2017Q4

REPORT INFORMATION
  Report Type: Spontaneous
  Country: US (occurrence: None)
  Receive Date: 20171208
  Receipt Date: 20171208
  Transmission Date: 20180321
  Serious: Yes (Hospitalization)
  Sender: FDA-Public Use
  Company Number: None

PATIENT
  Age: 58 Year
  Sex: Male

DRUGS (8)
  1. LOSARTAN/HCTZ [Concomitant]
     Active Substance: HYDROCHLOROTHIAZIDE\LOSARTAN
  2. PROMETHAZINE [Concomitant]
     Active Substance: PROMETHAZINE\PROMETHAZINE HYDROCHLORIDE
  3. BENZONATATE. [Concomitant]
     Active Substance: BENZONATATE
  4. ASPIRIN. [Concomitant]
     Active Substance: ASPIRIN
  5. AMIODARONE [Concomitant]
     Active Substance: AMIODARONE
  6. METOPROLOL. [Concomitant]
     Active Substance: METOPROLOL
  7. HYDROCODONE BITARTRATE AND ACETAMINOPHEN [Concomitant]
     Active Substance: ACETAMINOPHEN\HYDROCODONE BITARTRATE
  8. NEULASTA [Suspect]
     Active Substance: PEGFILGRASTIM
     Indication: BLADDER NEOPLASM
     Dosage: FREQUENCY - ONCE Q14DAYS
     Route: 058
     Dates: start: 20170908

REACTIONS (1)
  - Cerebrovascular accident [None]

NARRATIVE: CASE EVENT DATE: 20171201
